FAERS Safety Report 17529611 (Version 21)
Quarter: 2021Q2

REPORT INFORMATION
  Report Type: Spontaneous
  Country: IT (occurrence: IT)
  Receive Date: 20200312
  Receipt Date: 20210506
  Transmission Date: 20210716
  Serious: Yes (Other)
  Sender: FDA-Public Use
  Company Number: IT-AUROBINDO-AUR-APL-2020-012151

PATIENT
  Age: 73 Year
  Sex: Male
  Weight: 114 kg

DRUGS (44)
  1. FUROSEMIDE. [Suspect]
     Active Substance: FUROSEMIDE
     Indication: PRODUCT USED FOR UNKNOWN INDICATION
     Dosage: 25 MILLIGRAM
     Route: 048
  2. ACETYLSALICYLIC ACID [Suspect]
     Active Substance: ASPIRIN
     Dosage: 100 MILLIGRAM
     Route: 007
  3. ELIQUIS [Suspect]
     Active Substance: APIXABAN
     Indication: PROPHYLAXIS
     Dosage: 90  MILLIGRAM
     Route: 065
  4. ASPIRIN. [Suspect]
     Active Substance: ASPIRIN
     Indication: PRODUCT USED FOR UNKNOWN INDICATION
     Dosage: UNK
     Route: 007
  5. ASPIRIN. [Suspect]
     Active Substance: ASPIRIN
     Dosage: 4 MILLIGRAM
     Route: 065
  6. APIXABAN [Suspect]
     Active Substance: APIXABAN
     Indication: CEREBROVASCULAR ACCIDENT PROPHYLAXIS
     Dosage: 10 MILLIGRAM, ONCE A DAY
     Route: 048
     Dates: start: 20141031, end: 20200227
  7. CALCITRIOL. [Suspect]
     Active Substance: CALCITRIOL
     Dosage: UNK
     Route: 048
  8. CALCITRIOL. [Suspect]
     Active Substance: CALCITRIOL
     Dosage: UNK
     Route: 065
  9. PERINDOPRIL ALMUS [Suspect]
     Active Substance: PERINDOPRIL
     Dosage: 4 UNK
     Route: 065
  10. ALLOPURINOL TEVA [Suspect]
     Active Substance: ALLOPURINOL
     Indication: PRODUCT USED FOR UNKNOWN INDICATION
     Dosage: 100 MILLIGRAM
     Route: 048
  11. LASIX [Suspect]
     Active Substance: FUROSEMIDE
     Dosage: UNK
     Route: 065
  12. NORVASC [Suspect]
     Active Substance: AMLODIPINE BESYLATE
     Indication: PRODUCT USED FOR UNKNOWN INDICATION
     Dosage: UNK
     Route: 065
  13. ROCALTROL [Suspect]
     Active Substance: CALCITRIOL
     Dosage: 3 DOSAGE FORM
     Route: 048
  14. ROCALTROL [Suspect]
     Active Substance: CALCITRIOL
     Dosage: UNK
     Route: 065
  15. ALLOPURINOL TABLETS [Suspect]
     Active Substance: ALLOPURINOL
     Dosage: 100 MILLIGRAM
     Route: 048
  16. ALLOPURINOL TABLETS [Suspect]
     Active Substance: ALLOPURINOL
     Dosage: UNK
     Route: 048
  17. FUROSEMIDE. [Suspect]
     Active Substance: FUROSEMIDE
     Dosage: UNK
     Route: 048
  18. LANSOPRAZOLO GASTRO?RESISTANT CAPSULE, HARD [Suspect]
     Active Substance: LANSOPRAZOLE
     Indication: PRODUCT USED FOR UNKNOWN INDICATION
     Dosage: 15 MILLIGRAM
     Route: 065
  19. ELIQUIS [Suspect]
     Active Substance: APIXABAN
     Indication: ATRIAL FIBRILLATION
     Dosage: 84.4 MILLIGRAM, 84.404 MG,
     Route: 048
  20. ELIQUIS [Suspect]
     Active Substance: APIXABAN
     Dosage: 84.4 MILLIGRAM
     Route: 048
  21. LANSOPRAZOL [Suspect]
     Active Substance: LANSOPRAZOLE
     Indication: PRODUCT USED FOR UNKNOWN INDICATION
     Dosage: 15 MILLIGRAM
     Route: 065
  22. PERINDOPRIL TABLETS [Suspect]
     Active Substance: PERINDOPRIL
     Indication: PRODUCT USED FOR UNKNOWN INDICATION
     Dosage: 4 MILLIGRAM
     Route: 065
  23. PERINDOPRIL TABLETS [Suspect]
     Active Substance: PERINDOPRIL
     Dosage: UNK
     Route: 065
  24. ASPIRIN. [Suspect]
     Active Substance: ASPIRIN
     Dosage: 100 MILLIGRAM
     Route: 007
  25. CARDIOASPIRIN [Suspect]
     Active Substance: ASPIRIN
     Indication: PRODUCT USED FOR UNKNOWN INDICATION
     Dosage: 100 MILLIGRAM
     Route: 065
  26. CARDIOASPIRIN [Suspect]
     Active Substance: ASPIRIN
     Dosage: UNK
     Route: 065
  27. ELIQUIS [Suspect]
     Active Substance: APIXABAN
     Indication: CEREBROVASCULAR ACCIDENT PROPHYLAXIS
     Dosage: 10 MILLIGRAM, ONCE A DAY
     Route: 048
     Dates: start: 20141031, end: 20200227
  28. NORVASC [Suspect]
     Active Substance: AMLODIPINE BESYLATE
     Dosage: 4 MILLIGRAM
     Route: 065
  29. ROCALTROL [Suspect]
     Active Substance: CALCITRIOL
     Indication: PRODUCT USED FOR UNKNOWN INDICATION
     Dosage: 0.25 MILLIGRAM
     Route: 048
  30. TAMSULOSIN AUROBINDO ITALIA 0.4 MG MODIFIED RELEASE CAPSULES [Suspect]
     Active Substance: TAMSULOSIN HYDROCHLORIDE
     Indication: PRODUCT USED FOR UNKNOWN INDICATION
     Dosage: 0.4 MILLIGRAM
     Route: 065
  31. CALCITRIOL. [Suspect]
     Active Substance: CALCITRIOL
     Indication: PRODUCT USED FOR UNKNOWN INDICATION
     Dosage: 3 DOSAGE FORM
     Route: 048
  32. PERINDOPRIL TERT?BUTYLAMINE [Suspect]
     Active Substance: PERINDOPRIL ERBUMINE
     Indication: PRODUCT USED FOR UNKNOWN INDICATION
     Dosage: 4 MILLIGRAM
     Route: 065
  33. PERINDOPRIL TERT?BUTYLAMINE [Suspect]
     Active Substance: PERINDOPRIL ERBUMINE
     Dosage: 4 UNK
     Route: 065
  34. PERINDOPRIL ALMUS [Suspect]
     Active Substance: PERINDOPRIL
     Indication: PRODUCT USED FOR UNKNOWN INDICATION
     Dosage: 4 MILLIGRAM
     Route: 065
  35. AMLODIPINE [Suspect]
     Active Substance: AMLODIPINE BESYLATE
     Indication: PRODUCT USED FOR UNKNOWN INDICATION
     Dosage: UNK
     Route: 065
  36. TAMSULOSIN AUROBINDO ITALIA 0.4 MG MODIFIED RELEASE CAPSULES [Suspect]
     Active Substance: TAMSULOSIN HYDROCHLORIDE
     Dosage: UNK
     Route: 065
  37. ALLOPURINOL TEVA [Suspect]
     Active Substance: ALLOPURINOL
     Dosage: UNK
     Route: 048
  38. CALCITRIOL. [Suspect]
     Active Substance: CALCITRIOL
     Dosage: 0.25 MILLIGRAM
     Route: 048
  39. LASIX [Suspect]
     Active Substance: FUROSEMIDE
     Indication: PRODUCT USED FOR UNKNOWN INDICATION
     Dosage: 25 MILLIGRAM
     Route: 048
  40. ALLOPURINOL TABLETS [Suspect]
     Active Substance: ALLOPURINOL
     Indication: PRODUCT USED FOR UNKNOWN INDICATION
     Dosage: 100 MILLIGRAM
     Route: 065
  41. AMLODIPINE [Suspect]
     Active Substance: AMLODIPINE BESYLATE
     Dosage: 4 MILLIGRAM
     Route: 065
  42. ATENOLOL  100 MG FILM COATED TABLETS [Suspect]
     Active Substance: ATENOLOL
     Indication: PRODUCT USED FOR UNKNOWN INDICATION
     Dosage: 100 MILLIGRAM
     Route: 048
  43. ACETYLSALICYLIC ACID [Suspect]
     Active Substance: ASPIRIN
     Indication: PRODUCT USED FOR UNKNOWN INDICATION
     Dosage: 100 MILLIGRAM
     Route: 065
  44. ASPIRIN. [Suspect]
     Active Substance: ASPIRIN
     Dosage: 100 MILLIGRAM
     Route: 065

REACTIONS (3)
  - Off label use [Recovered/Resolved]
  - Prescribed overdose [Recovered/Resolved]
  - Haematochezia [Recovering/Resolving]

NARRATIVE: CASE EVENT DATE: 20141108
